FAERS Safety Report 4487845-7 (Version None)
Quarter: 2004Q4

REPORT INFORMATION
  Report Type: 
  Country: None (occurrence: None)
  Receive Date: 20041027
  Receipt Date: 20041027
  Transmission Date: 20050328
  Serious: Yes (Hospitalization)
  Sender: FDA-Public Use
  Company Number: None

PATIENT
  Age: 76 Year
  Sex: Male
  Weight: 89.8122 kg

DRUGS (1)
  1. RAMIPRIL [Suspect]

REACTIONS (4)
  - DIARRHOEA [None]
  - NAUSEA [None]
  - PRURITUS [None]
  - RASH [None]
